FAERS Safety Report 17501730 (Version 2)
Quarter: 2020Q1

REPORT INFORMATION
  Report Type: Spontaneous
  Country: US (occurrence: US)
  Receive Date: 20200305
  Receipt Date: 20200330
  Transmission Date: 20200409
  Serious: No
  Sender: FDA-Public Use
  Company Number: US-PFIZER INC-2019498707

PATIENT
  Age: 56 Year
  Sex: Male
  Weight: 74 kg

DRUGS (14)
  1. LYRICA [Suspect]
     Active Substance: PREGABALIN
     Indication: SPINAL FUSION SURGERY
  2. LYRICA [Suspect]
     Active Substance: PREGABALIN
     Indication: CERVICAL SPINAL STENOSIS
  3. CELEBREX [Concomitant]
     Active Substance: CELECOXIB
     Indication: PAIN
     Dosage: 200 MG, 1X/DAY
     Route: 048
     Dates: start: 201902
  4. LYRICA [Suspect]
     Active Substance: PREGABALIN
     Indication: CERVICAL RADICULOPATHY
     Dosage: 50 MG, 2X/DAY (WEEK 2: 50 MG QAM (EVERY MORNING) AND QPM (EVERY EVENING)
     Route: 048
     Dates: start: 2019, end: 2019
  5. LYRICA [Suspect]
     Active Substance: PREGABALIN
     Indication: CRANIOCEREBRAL INJURY
     Dosage: 150 MG, 1X/DAY (WEEK 3: 50 MG Q AM(EVERY MORNING) AND 100 MG QHS(AT BED TIME)
     Route: 048
     Dates: start: 2019, end: 2019
  6. LYRICA [Suspect]
     Active Substance: PREGABALIN
     Indication: MUSCLE SPASTICITY
  7. LYRICA [Suspect]
     Active Substance: PREGABALIN
     Indication: PAIN
  8. EFFEXOR XR [Concomitant]
     Active Substance: VENLAFAXINE HYDROCHLORIDE
     Indication: DEPRESSION
     Dosage: 75 MG, 1X/DAY
     Route: 048
     Dates: start: 201909
  9. LYRICA [Suspect]
     Active Substance: PREGABALIN
     Indication: NEURALGIA
     Dosage: 50 MG, 1X/DAY (WEEK 1: 50 MG QHS (BED TIME)
     Dates: start: 20191017, end: 2019
  10. LYRICA [Suspect]
     Active Substance: PREGABALIN
     Indication: LOSS OF CONSCIOUSNESS
     Dosage: 100 MG, 2X/DAY (WEEK 4: 100 MG BID (TWICE IN A DAY))
     Route: 048
     Dates: start: 2019, end: 2019
  11. LYRICA [Suspect]
     Active Substance: PREGABALIN
     Indication: MUSCULOSKELETAL DISCOMFORT
  12. LYRICA [Suspect]
     Active Substance: PREGABALIN
     Indication: LUMBAR SPINAL STENOSIS
  13. LYRICA [Suspect]
     Active Substance: PREGABALIN
     Indication: HEPATOCELLULAR CARCINOMA
     Dosage: 150 MG, 2X/DAY (WEEK 5: 150 MG BID (TWICE IN A DAY)
     Route: 048
     Dates: start: 2019, end: 2019
  14. LYRICA [Suspect]
     Active Substance: PREGABALIN
     Indication: CERVICAL VERTEBRAL FRACTURE

REACTIONS (1)
  - Drug ineffective [Unknown]

NARRATIVE: CASE EVENT DATE: 201911
